FAERS Safety Report 6412000-0 (Version None)
Quarter: 2009Q4

REPORT INFORMATION
  Report Type: 
  Country: None (occurrence: None)
  Receive Date: 20091020
  Receipt Date: 20091009
  Transmission Date: 20100525
  Serious: Yes (Death)
  Sender: FDA-Public Use
  Company Number: FABR-1000913

PATIENT
  Age: 37 Year
  Sex: Male
  Weight: 65 kg

DRUGS (2)
  1. FABRAZYME [Suspect]
     Indication: FABRY'S DISEASE
     Dosage: 65 MG, Q2W, INTRAVENOUS
     Route: 042
     Dates: start: 20051201, end: 20090701
  2. FABRAZYME [Suspect]

REACTIONS (2)
  - CARDIAC ARREST [None]
  - MYOCARDIAL INFARCTION [None]
